FAERS Safety Report 5595385-7 (Version None)
Quarter: 2008Q1

REPORT INFORMATION
  Report Type: 
  Country: None (occurrence: None)
  Receive Date: 20080118
  Receipt Date: 20080108
  Transmission Date: 20080703
  Serious: Yes (Hospitalization)
  Sender: FDA-Public Use
  Company Number: HQWYE163214SEP07

PATIENT
  Sex: Female

DRUGS (5)
  1. AVLOCARDYL [Suspect]
     Indication: HYPERTHYROIDISM
     Route: 048
     Dates: start: 20070725, end: 20070806
  2. AVLOCARDYL [Suspect]
     Route: 048
     Dates: start: 20070807, end: 20070811
  3. AVLOCARDYL [Suspect]
     Route: 048
     Dates: start: 20070813, end: 20070814
  4. NEO-MERCAZOLE TAB [Concomitant]
     Indication: HYPERTHYROIDISM
     Dosage: DOSE AND FREQUENCY NOT SPECIFIED
     Route: 065
     Dates: start: 20070725, end: 20070811
  5. NEO-MERCAZOLE TAB [Concomitant]
     Dosage: DOSE AND FREQUENCY NOT SPECIFIED
     Route: 065
     Dates: start: 20070814

REACTIONS (8)
  - ARTHRALGIA [None]
  - AUTOIMMUNE THYROIDITIS [None]
  - CONJUNCTIVITIS [None]
  - MYALGIA [None]
  - OEDEMA PERIPHERAL [None]
  - PRURITUS GENERALISED [None]
  - SERUM SICKNESS [None]
  - URTICARIA [None]
